FAERS Safety Report 5324394-8 (Version None)
Quarter: 2007Q2

REPORT INFORMATION
  Report Type: 
  Country: None (occurrence: None)
  Receive Date: 20070509
  Receipt Date: 20070425
  Transmission Date: 20071010
  Serious: Yes (Hospitalization)
  Sender: FDA-Public Use
  Company Number: 2007RR-07253

PATIENT
  Age: 34 Year
  Sex: Female

DRUGS (3)
  1. GABAPENTIN [Suspect]
     Dosage: SEE IMAGE
  2. VALPRIC ACID (VALPROIC ACID) [Concomitant]
  3. VIGABATRIN [Concomitant]

REACTIONS (6)
  - ACCIDENTAL OVERDOSE [None]
  - CEREBRAL ATROPHY [None]
  - COMA [None]
  - DILATATION VENTRICULAR [None]
  - DRUG PRESCRIBING ERROR [None]
  - STATUS EPILEPTICUS [None]
